FAERS Safety Report 11971725 (Version 2)
Quarter: 2016Q1

REPORT INFORMATION
  Report Type: Spontaneous
  Country: US (occurrence: US)
  Receive Date: 20160128
  Receipt Date: 20160307
  Transmission Date: 20160526
  Serious: Yes (Other)
  Sender: FDA-Public Use
  Company Number: US-SA-2016SA015065

PATIENT
  Age: 28 Year
  Sex: Female

DRUGS (7)
  1. ZOVIA [Concomitant]
     Active Substance: ETHINYL ESTRADIOL\ETHYNODIOL DIACETATE
     Dates: start: 20150724, end: 20160114
  2. PRENATAL [Concomitant]
     Active Substance: VITAMINS
  3. AUBAGIO [Suspect]
     Active Substance: TERIFLUNOMIDE
     Indication: MULTIPLE SCLEROSIS
     Route: 048
  4. VITAMIN D [Concomitant]
     Active Substance: CHOLECALCIFEROL
     Dates: start: 20150724, end: 20160114
  5. NADOLOL. [Concomitant]
     Active Substance: NADOLOL
  6. TYLENOL [Concomitant]
     Active Substance: ACETAMINOPHEN
  7. ZANTAC [Concomitant]
     Active Substance: RANITIDINE HYDROCHLORIDE
     Dates: start: 20150724, end: 20160114

REACTIONS (7)
  - Headache [Unknown]
  - Gait disturbance [Unknown]
  - Memory impairment [Unknown]
  - Mood swings [Unknown]
  - Hemiparesis [Unknown]
  - Fatigue [Unknown]
  - Balance disorder [Unknown]
